FAERS Safety Report 6713828-X (Version None)
Quarter: 2010Q2

REPORT INFORMATION
  Report Type: 
  Country: None (occurrence: None)
  Receive Date: 20100504
  Receipt Date: 20100428
  Transmission Date: 20101027
  Serious: Yes (Hospitalization)
  Sender: FDA-Public Use
  Company Number: 2010SP017593

PATIENT
  Age: 58 Year
  Sex: Female

DRUGS (12)
  1. TEMODAL [Suspect]
     Indication: GLIOBLASTOMA
     Dosage: PO; 250 G;QD;PO; PO; PO
     Route: 048
     Dates: start: 20090706, end: 20090818
  2. TEMODAL [Suspect]
     Indication: GLIOBLASTOMA
     Dosage: PO; 250 G;QD;PO; PO; PO
     Route: 048
     Dates: start: 20100203, end: 20100207
  3. TEMODAL [Suspect]
     Indication: GLIOBLASTOMA
     Dosage: PO; 250 G;QD;PO; PO; PO
     Route: 048
     Dates: start: 20100412, end: 20100416
  4. TEMODAL [Suspect]
     Indication: GLIOBLASTOMA
     Dosage: PO; 250 G;QD;PO; PO; PO
     Route: 048
     Dates: start: 20100301
  5. ZOPHREN (CON.) [Concomitant]
  6. MEDROL (CON.) [Concomitant]
  7. DIFFU K (CON.) [Concomitant]
  8. KEPPRA (CON.) [Concomitant]
  9. OMEPRAZOLE (CON.) [Concomitant]
  10. CACIT D3 (CON.) [Concomitant]
  11. BONVIVA (CON.) [Concomitant]
  12. PENTACARINAT (CON.) [Concomitant]

REACTIONS (8)
  - CONFUSIONAL STATE [None]
  - ERYTHEMA [None]
  - HYPERTHERMIA [None]
  - MALAISE [None]
  - NAUSEA [None]
  - PRURITUS [None]
  - RASH MACULAR [None]
  - VOMITING [None]
